FAERS Safety Report 25096665 (Version 1)
Quarter: 2025Q1

REPORT INFORMATION
  Report Type: Spontaneous
  Country: US (occurrence: US)
  Receive Date: 20250319
  Receipt Date: 20250319
  Transmission Date: 20250409
  Serious: No
  Sender: SANDOZ
  Company Number: US-SANDOZ-SDZ2024US089356

PATIENT
  Sex: Male

DRUGS (4)
  1. OMNITROPE [Suspect]
     Active Substance: SOMATROPIN
     Indication: Product used for unknown indication
     Dosage: 2.4 MG 2 DOSE EVERY N/A N/A
     Route: 065
  2. OMNITROPE [Suspect]
     Active Substance: SOMATROPIN
     Indication: Product used for unknown indication
     Dosage: 2.4 MG 2 DOSE EVERY N/A N/A
     Route: 065
  3. OMNITROPE [Suspect]
     Active Substance: SOMATROPIN
     Dosage: 2.5 MG, QD (FORMULATION: SUSPENSION)
     Route: 058
     Dates: start: 20250314, end: 20250314
  4. OMNITROPE [Suspect]
     Active Substance: SOMATROPIN
     Dosage: 2.5 MG, QD (FORMULATION: SUSPENSION)
     Route: 058
     Dates: start: 20250314, end: 20250314

REACTIONS (3)
  - Product dose omission issue [Unknown]
  - Device breakage [Unknown]
  - Product availability issue [Unknown]
